FAERS Safety Report 5075900-2 (Version None)
Quarter: 2006Q3

REPORT INFORMATION
  Report Type: 
  Country: None (occurrence: None)
  Receive Date: 20060807
  Receipt Date: 20060807
  Transmission Date: 20061208
  Serious: Yes (Other)
  Sender: FDA-Public Use
  Company Number: None

PATIENT
  Sex: Female

DRUGS (1)
  1. AMITZA     24 MCG    TAKEDA PHARMACEUTIC [Suspect]
     Dosage: ONE CAPSULE    TWICE DAILY   PO
     Route: 048
     Dates: start: 20060805, end: 20060805

REACTIONS (4)
  - ABDOMINAL PAIN LOWER [None]
  - BACK PAIN [None]
  - FATIGUE [None]
  - FLANK PAIN [None]
